FAERS Safety Report 7902530-4 (Version None)
Quarter: 2011Q4

REPORT INFORMATION
  Report Type: 
  Country: None (occurrence: None)
  Receive Date: 20111108
  Receipt Date: 20111026
  Transmission Date: 20120403
  Serious: Yes (Other)
  Sender: FDA-Public Use
  Company Number: US-ELI_LILLY_AND_COMPANY-US201110005384

PATIENT
  Sex: Female

DRUGS (18)
  1. ASPIRIN [Concomitant]
     Dosage: UNK, QD
  2. FORTEO [Suspect]
     Dosage: 20 UG, QD
  3. NITROSTAT [Concomitant]
  4. SERTRALINE HYDROCHLORIDE [Concomitant]
  5. IBUPROFEN [Concomitant]
  6. LOVASTATIN [Concomitant]
  7. FORTEO [Suspect]
     Indication: OSTEOPOROSIS
     Dosage: UNK, QD
     Route: 058
  8. VITAMIN D [Concomitant]
  9. CELEBREX [Concomitant]
  10. ROPINIROLE HYDROCHLORIDE [Concomitant]
  11. NEXIUM [Concomitant]
  12. CALCIUM CARBONATE [Concomitant]
  13. ORPHENADRINE CITRATE [Concomitant]
  14. LISINOPRIL [Concomitant]
  15. HYDROCODONE BITARTRATE [Concomitant]
  16. FORTEO [Suspect]
     Dosage: 20 UG, QD
  17. LOVAZA [Concomitant]
  18. LAXATIVES [Concomitant]

REACTIONS (14)
  - DRUG DOSE OMISSION [None]
  - TREMOR [None]
  - FEAR [None]
  - DRUG INEFFECTIVE [None]
  - HYPOAESTHESIA [None]
  - DIZZINESS [None]
  - SPONDYLOARTHROPATHY [None]
  - EYE DISORDER [None]
  - BLINDNESS UNILATERAL [None]
  - BALANCE DISORDER [None]
  - VISUAL FIELD DEFECT [None]
  - TOOTH INFECTION [None]
  - INTERVERTEBRAL DISC DEGENERATION [None]
  - JAW DISORDER [None]
